FAERS Safety Report 22012182 (Version 1)
Quarter: 2023Q1

REPORT INFORMATION
  Report Type: Report from Study
  Country: US (occurrence: US)
  Receive Date: 20230220
  Receipt Date: 20230220
  Transmission Date: 20230417
  Serious: No
  Sender: FDA-Public Use
  Company Number: US-AURINIA PHARMACEUTICALS INC.-AUR-002483

PATIENT
  Sex: Female

DRUGS (2)
  1. LUPKYNIS [Suspect]
     Active Substance: VOCLOSPORIN
     Indication: Lupus nephritis
     Dosage: 23.7 MGS IN AM AND 15.8 MGS IN PM
     Route: 048
     Dates: start: 20220706
  2. LUPKYNIS [Suspect]
     Active Substance: VOCLOSPORIN
     Dosage: 3 CAPSULES TWICE DAILY
     Route: 048

REACTIONS (2)
  - Hypertension [Unknown]
  - Incorrect dose administered [Unknown]
